FAERS Safety Report 7565550-8 (Version None)
Quarter: 2011Q2

REPORT INFORMATION
  Report Type: 
  Country: None (occurrence: None)
  Receive Date: 20110615
  Receipt Date: 20110601
  Transmission Date: 20111010
  Serious: Yes (Other)
  Sender: FDA-Public Use
  Company Number: DE-1186603

PATIENT
  Age: 23 Year
  Sex: Male

DRUGS (2)
  1. MAXITROL [Suspect]
     Indication: CONJUNCTIVITIS
     Dosage: OPHTHALMIC
  2. MAXITROL [Suspect]
     Indication: CONJUNCTIVITIS
     Dosage: OPHTHALMIC
     Route: 047

REACTIONS (2)
  - HEADACHE [None]
  - GLAUCOMA [None]
